FAERS Safety Report 6457302-7 (Version None)
Quarter: 2009Q4

REPORT INFORMATION
  Report Type: 
  Country: None (occurrence: None)
  Receive Date: 20091125
  Receipt Date: 20091116
  Transmission Date: 20100525
  Serious: Yes (Hospitalization)
  Sender: FDA-Public Use
  Company Number: NO-PFIZER INC-2009297820

PATIENT
  Age: 44 Year
  Sex: Male

DRUGS (1)
  1. CHAMPIX [Suspect]
     Indication: SMOKING CESSATION THERAPY
     Dosage: 1 MG, 2X/DAY
     Route: 048
     Dates: start: 20090723, end: 20090901

REACTIONS (5)
  - ABNORMAL DREAMS [None]
  - AMNESIA [None]
  - DEPRESSION [None]
  - MOOD SWINGS [None]
  - PANIC ATTACK [None]
